FAERS Safety Report 21955639 (Version 1)
Quarter: 2023Q1

REPORT INFORMATION
  Report Type: Spontaneous
  Country: JP (occurrence: JP)
  Receive Date: 20230206
  Receipt Date: 20230206
  Transmission Date: 20230417
  Serious: Yes (Death)
  Sender: FDA-Public Use
  Company Number: JP-DSJP-DSJ-2023-103391

PATIENT
  Age: 55 Year
  Sex: Female

DRUGS (4)
  1. DENOSUMAB [Suspect]
     Active Substance: DENOSUMAB
     Indication: Metastases to bone
     Dosage: 120 MG, ONCE EVERY 4 WK
     Route: 065
  2. DENOSUMAB [Suspect]
     Active Substance: DENOSUMAB
     Indication: Hypercalcaemia
     Dosage: UNK
     Route: 065
  3. FULVESTRANT [Suspect]
     Active Substance: FULVESTRANT
     Indication: Product used for unknown indication
     Dosage: 500 MG, ONCE EVERY 4 WK
     Route: 065
  4. LETROZOLE [Concomitant]
     Active Substance: LETROZOLE
     Dosage: 2.5MG/DAY
     Route: 065

REACTIONS (1)
  - Metastases to liver [Fatal]
